FAERS Safety Report 6283388-9 (Version None)
Quarter: 2009Q3

REPORT INFORMATION
  Report Type: 
  Country: None (occurrence: None)
  Receive Date: 20090724
  Receipt Date: 20090119
  Transmission Date: 20100115
  Serious: No
  Sender: FDA-Public Use
  Company Number: US-AMGEN-KDL329319

PATIENT
  Sex: Female
  Weight: 80.4 kg

DRUGS (5)
  1. PROCRIT [Suspect]
     Indication: ANAEMIA OF MALIGNANT DISEASE
     Route: 058
     Dates: start: 20070101
  2. VITAMINS [Concomitant]
  3. CALCIUM [Concomitant]
  4. UNSPECIFIED ANTIHYPERTENSIVE AGENT [Concomitant]
  5. MOTRIN [Concomitant]

REACTIONS (4)
  - DIZZINESS [None]
  - INCREASED APPETITE [None]
  - INJECTION SITE IRRITATION [None]
  - NAUSEA [None]
